FAERS Safety Report 7054003-1 (Version None)
Quarter: 2010Q4

REPORT INFORMATION
  Report Type: 
  Country: None (occurrence: None)
  Receive Date: 20101020
  Receipt Date: 20101013
  Transmission Date: 20110411
  Serious: Yes (Other)
  Sender: FDA-Public Use
  Company Number: US-PFIZER INC-2010003255

PATIENT
  Sex: Female
  Weight: 87 kg

DRUGS (2)
  1. NEURONTIN [Suspect]
     Indication: NEURALGIA
     Dosage: UNK, 2X/DAY
     Route: 048
  2. OXYCODONE [Concomitant]
     Dosage: 10 MG, UNK

REACTIONS (3)
  - AMNESIA [None]
  - PAIN [None]
  - VITAMIN D DEFICIENCY [None]
